FAERS Safety Report 8785787 (Version 2)
Quarter: 2012Q4

REPORT INFORMATION
  Report Type: 
  Country: US (occurrence: US)
  Receive Date: 20120914
  Receipt Date: 20121001
  Transmission Date: 20130627
  Serious: Yes (Other)
  Sender: FDA-Public Use
  Company Number: US-UCBSA-065333

PATIENT
  Sex: Female

DRUGS (2)
  1. CIMZIA [Suspect]
     Indication: CROHN^S DISEASE
     Dates: start: 2008
  2. CIMZIA [Suspect]
     Indication: CROHN^S DISEASE
     Dates: start: 201110

REACTIONS (3)
  - Laceration [Not Recovered/Not Resolved]
  - Accident [Unknown]
  - Drug ineffective [Unknown]
